FAERS Safety Report 7776264-3 (Version None)
Quarter: 2011Q3

REPORT INFORMATION
  Report Type: 
  Country: None (occurrence: None)
  Receive Date: 20110921
  Receipt Date: 20110921
  Transmission Date: 20111222
  Serious: No
  Sender: FDA-Public Use
  Company Number: None

PATIENT
  Age: 85 Year
  Sex: Male

DRUGS (5)
  1. DOCUSATE SODIUM [Concomitant]
  2. REVLIMID [Suspect]
     Indication: MULTIPLE MYELOMA
     Dosage: 5MG DAILY ORAL
     Route: 048
     Dates: start: 20081201, end: 20110501
  3. WARFARIN SODIUM [Concomitant]
  4. MYCOLOG [Concomitant]
  5. VICODIN [Concomitant]

REACTIONS (1)
  - NEUROPATHY PERIPHERAL [None]
